FAERS Safety Report 18542953 (Version 2)
Quarter: 2021Q2

REPORT INFORMATION
  Report Type: Report from Study
  Country: CA (occurrence: CA)
  Receive Date: 20201125
  Receipt Date: 20210517
  Transmission Date: 20210717
  Serious: Yes (Other)
  Sender: FDA-Public Use
  Company Number: CA-JNJFOC-20201130258

PATIENT
  Age: 8 Decade
  Sex: Male

DRUGS (1)
  1. REMICADE [Suspect]
     Active Substance: INFLIXIMAB
     Indication: ANKYLOSING SPONDYLITIS
     Route: 042

REACTIONS (5)
  - Psoriasis [Unknown]
  - Fatigue [Unknown]
  - Feeling abnormal [Unknown]
  - Hypersomnia [Unknown]
  - Immunosuppression [Unknown]

NARRATIVE: CASE EVENT DATE: 202010
